FAERS Safety Report 12540592 (Version 1)
Quarter: 2016Q3

REPORT INFORMATION
  Report Type: Spontaneous
  Country: US (occurrence: US)
  Receive Date: 20160708
  Receipt Date: 20160708
  Transmission Date: 20161109
  Serious: No
  Sender: FDA-Public Use
  Company Number: US-TEVA-650655USA

PATIENT
  Sex: Male

DRUGS (1)
  1. ZECUITY [Suspect]
     Active Substance: SUMATRIPTAN SUCCINATE
     Dosage: 6.5 MG OVER 4 HOURS
     Route: 062

REACTIONS (5)
  - Application site urticaria [Unknown]
  - Application site pruritus [Recovered/Resolved]
  - Application site reaction [Unknown]
  - Application site irritation [Recovered/Resolved]
  - Application site erythema [Unknown]
